FAERS Safety Report 9033008 (Version 1)
Quarter: 2013Q1

REPORT INFORMATION
  Report Type: Spontaneous
  Country: ID (occurrence: ID)
  Receive Date: 20130128
  Receipt Date: 20130128
  Transmission Date: 20140127
  Serious: Yes (Death, Hospitalization)
  Sender: FDA-Public Use
  Company Number: ID-JNJFOC-20130111705

PATIENT
  Age: 42 Year
  Sex: Male

DRUGS (9)
  1. DOXORUBICIN HYDROCHLORIDE [Suspect]
     Indication: LYMPHOMA
     Dosage: 3 CYCLES
     Route: 042
  2. DOXORUBICIN HYDROCHLORIDE [Suspect]
     Indication: LYMPHOMA
     Dosage: 3 CYCLES
     Route: 042
  3. CYCLOPHOSPHAMIDE [Suspect]
     Indication: LYMPHOMA
     Route: 065
  4. CYCLOPHOSPHAMIDE [Suspect]
     Indication: LYMPHOMA
     Dosage: 3 CYCLES
     Route: 065
  5. VINCRISTINE [Suspect]
     Indication: LYMPHOMA
     Route: 065
  6. VINCRISTINE [Suspect]
     Indication: LYMPHOMA
     Dosage: 3 CYCLES
     Route: 065
  7. PREDNISOLONE [Suspect]
     Indication: LYMPHOMA
     Dosage: 3 CYCLES
     Route: 065
  8. PREDNISOLONE [Suspect]
     Indication: LYMPHOMA
     Route: 065
  9. RITUXIMAB [Suspect]
     Indication: LYMPHOMA
     Route: 065

REACTIONS (4)
  - Acute hepatic failure [Fatal]
  - Hepatitis B [Fatal]
  - Hepatic encephalopathy [Unknown]
  - Drug ineffective [Unknown]
